FAERS Safety Report 8988301 (Version 4)
Quarter: 2013Q2

REPORT INFORMATION
  Report Type: Spontaneous
  Country: US (occurrence: US)
  Receive Date: 20121227
  Receipt Date: 20130401
  Transmission Date: 20140414
  Serious: No
  Sender: FDA-Public Use
  Company Number: US-009507513-1212USA010207

PATIENT
  Age: 63 Year
  Sex: Male
  Weight: 91.2 kg

DRUGS (10)
  1. VICTRELIS [Suspect]
     Indication: CHRONIC HEPATITIS C
     Dosage: 800 MG, Q8H
     Route: 048
     Dates: start: 20121119
  2. VICTRELIS [Suspect]
     Dosage: 800MG, Q8H WITH FOOD
     Route: 048
     Dates: start: 20121215
  3. RIBASPHERE [Suspect]
     Indication: HEPATITIS C
     Dosage: UNK
     Dates: start: 20121009
  4. PEGASYS [Suspect]
     Indication: HEPATITIS C
     Dosage: UNK
     Dates: start: 20121009
  5. METOPROLOL [Concomitant]
  6. XANAX [Concomitant]
  7. GABAPENTIN [Concomitant]
  8. SPIRONOLACTONE [Concomitant]
  9. DOXAZOSIN MESYLATE [Concomitant]
  10. ACIPHEX [Concomitant]

REACTIONS (7)
  - Bronchitis [Recovering/Resolving]
  - Chills [Unknown]
  - Decreased interest [Unknown]
  - Pyrexia [Recovered/Resolved]
  - Rash generalised [Unknown]
  - Fatigue [Unknown]
  - Respiratory tract infection [Unknown]
